FAERS Safety Report 16395355 (Version 1)
Quarter: 2019Q3

REPORT INFORMATION
  Report Type: Spontaneous
  Country: US (occurrence: US)
  Receive Date: 20190604
  Receipt Date: 20190604
  Transmission Date: 20191004
  Serious: No
  Sender: FDA-Public Use
  Company Number: None

PATIENT
  Age: 59 Year
  Sex: Female

DRUGS (1)
  1. SODIUM CHLORIDE HYPERTONICITY OPHTHALMIC SOLUTION 5% SOLUTION [Suspect]
     Active Substance: SODIUM CHLORIDE
     Indication: DRY EYE
     Route: 047
     Dates: start: 20190531, end: 20190601

REACTIONS (3)
  - Lacrimation increased [None]
  - Instillation site pain [None]
  - Eye pain [None]

NARRATIVE: CASE EVENT DATE: 20190531
